FAERS Safety Report 14919668 (Version 3)
Quarter: 2018Q2

REPORT INFORMATION
  Report Type: Report from Study
  Country: BR (occurrence: BR)
  Receive Date: 20180521
  Receipt Date: 20180601
  Transmission Date: 20180711
  Serious: Yes (Death, Hospitalization)
  Sender: FDA-Public Use
  Company Number: PHHY2018BR004815

PATIENT
  Sex: Female
  Weight: 60 kg

DRUGS (1)
  1. ACLASTA [Suspect]
     Active Substance: ZOLEDRONIC ACID
     Indication: OSTEOPOROSIS
     Dosage: 1 DF (5 MG/100 ML), Q12MO
     Route: 042
     Dates: start: 20171201, end: 20171201

REACTIONS (5)
  - Pulmonary fibrosis [Fatal]
  - Pneumonia [Fatal]
  - Nosocomial infection [Fatal]
  - Respiratory tract infection [Fatal]
  - Sepsis [Fatal]
